FAERS Safety Report 15300068 (Version 4)
Quarter: 2019Q2

REPORT INFORMATION
  Report Type: Spontaneous
  Country: US (occurrence: US)
  Receive Date: 20180821
  Receipt Date: 20190625
  Transmission Date: 20190711
  Serious: No
  Sender: FDA-Public Use
  Company Number: US-PFIZER INC-2018084099

PATIENT
  Age: 13 Year
  Sex: Female
  Weight: 42 kg

DRUGS (10)
  1. GENOTROPIN [Suspect]
     Active Substance: SOMATROPIN
     Dosage: 2.8 MG, ONCE DAILY (2.8 ONCE A DAY)
     Dates: start: 201709
  2. ELESTRIN [Concomitant]
     Active Substance: ESTRADIOL
     Dosage: UNK
     Dates: start: 2017
  3. GENOTROPIN [Suspect]
     Active Substance: SOMATROPIN
     Indication: TURNER^S SYNDROME
     Dosage: 2.8 MG, DAILY
     Route: 058
     Dates: start: 20071010
  4. MEDROXYPROGESTERONE [Concomitant]
     Active Substance: MEDROXYPROGESTERONE
     Dosage: UNK
     Dates: start: 2018
  5. GENOTROPIN [Suspect]
     Active Substance: SOMATROPIN
     Dosage: 3 MG, DAILY
     Dates: start: 20170916
  6. GENOTROPIN [Suspect]
     Active Substance: SOMATROPIN
     Dosage: 3 MG, 1X/DAY BY INJECTION
     Dates: start: 2016
  7. LEVOTHYROXINE. [Concomitant]
     Active Substance: LEVOTHYROXINE
     Indication: HYPOTHYROIDISM
     Dosage: 62.5 MG, DAILY
     Dates: start: 20120801
  8. MEDROXYPROGESTERONE [Concomitant]
     Active Substance: MEDROXYPROGESTERONE
     Indication: TURNER^S SYNDROME
     Dosage: 5 MG, 2X/DAY (BID)
     Dates: start: 20170714
  9. ELESTRIN [Concomitant]
     Active Substance: ESTRADIOL
     Indication: TURNER^S SYNDROME
     Dosage: 1 METERED DAILY DOSE
     Dates: start: 20151001
  10. LEVOTHYROXINE. [Concomitant]
     Active Substance: LEVOTHYROXINE
     Dosage: UNK
     Dates: start: 2011

REACTIONS (3)
  - Burning sensation [Not Recovered/Not Resolved]
  - Product dose omission [Unknown]
  - Device issue [Unknown]

NARRATIVE: CASE EVENT DATE: 20180223
